FAERS Safety Report 23480696 (Version 1)
Quarter: 2024Q1

REPORT INFORMATION
  Report Type: Spontaneous
  Country: IN (occurrence: IN)
  Receive Date: 20240205
  Receipt Date: 20240205
  Transmission Date: 20240410
  Serious: Yes (Hospitalization, Other)
  Sender: FDA-Public Use
  Company Number: IN-EPICPHARMA-IN-2024EPCLIT00226

PATIENT
  Age: 75 Year
  Sex: Male

DRUGS (1)
  1. PHENYTOIN [Suspect]
     Active Substance: PHENYTOIN
     Indication: Generalised tonic-clonic seizure
     Dosage: LOADING DOSE OF INJECTION 20G IV CANNULA OVER 30MIN
     Route: 042

REACTIONS (1)
  - Purple glove syndrome [Recovered/Resolved]
